FAERS Safety Report 6265125-7 (Version None)
Quarter: 2009Q3

REPORT INFORMATION
  Report Type: 
  Country: None (occurrence: None)
  Receive Date: 20090713
  Receipt Date: 20090702
  Transmission Date: 20100115
  Serious: Yes (Other)
  Sender: FDA-Public Use
  Company Number: CA-JNJFOC-20090701434

PATIENT
  Sex: Male
  Weight: 67 kg

DRUGS (3)
  1. REMICADE [Suspect]
     Dosage: 3RD LOADING DOSE
     Route: 042
  2. REMICADE [Suspect]
     Route: 042
  3. REMICADE [Suspect]
     Indication: PSORIASIS
     Route: 042

REACTIONS (3)
  - AMNESIA [None]
  - ANGER [None]
  - MOOD SWINGS [None]
